FAERS Safety Report 14022313 (Version 3)
Quarter: 2019Q4

REPORT INFORMATION
  Report Type: Report from Study
  Country: US (occurrence: US)
  Receive Date: 20170928
  Receipt Date: 20191031
  Transmission Date: 20200122
  Serious: Yes (Hospitalization, Other)
  Sender: FDA-Public Use
  Company Number: US-ARIAD PHARMACEUTICALS, INC-2017US007889

PATIENT
  Age: 48 Year
  Sex: Female

DRUGS (10)
  1. TIVICAY [Concomitant]
     Active Substance: DOLUTEGRAVIR SODIUM
     Dosage: UNK
     Route: 065
  2. PONATINIB [Suspect]
     Active Substance: PONATINIB
     Indication: CHRONIC MYELOID LEUKAEMIA
     Dosage: 30 MILLIGRAM, QD
     Route: 048
     Dates: start: 20151106
  3. BLINATUMOMAB [Suspect]
     Active Substance: BLINATUMOMAB
     Dosage: UNK
     Route: 065
     Dates: start: 20170127, end: 20170223
  4. EMTRICITABINE W/TENOFOVIR ALAFENAMIDE [Concomitant]
     Active Substance: EMTRICITABINE\TENOFOVIR ALAFENAMIDE FUMARATE
     Dosage: UNK
     Route: 065
  5. PONATINIB [Suspect]
     Active Substance: PONATINIB
     Indication: HIV INFECTION
     Dosage: 30 MILLIGRAM, QD
     Route: 048
  6. VALTREX [Concomitant]
     Active Substance: VALACYCLOVIR HYDROCHLORIDE
     Dosage: UNK
     Route: 065
  7. PONATINIB [Suspect]
     Active Substance: PONATINIB
     Dosage: 15 MILLIGRAM, QD
     Route: 048
  8. BLINATUMOMAB [Suspect]
     Active Substance: BLINATUMOMAB
     Indication: CHRONIC MYELOID LEUKAEMIA
     Dosage: UNK
     Route: 065
  9. BLINATUMOMAB [Suspect]
     Active Substance: BLINATUMOMAB
     Dosage: UNK
     Route: 065
     Dates: end: 20161202
  10. AMLODIPINE BESYLATE. [Concomitant]
     Active Substance: AMLODIPINE BESYLATE
     Dosage: UNK
     Route: 065

REACTIONS (32)
  - Bacteraemia [Unknown]
  - Aphasia [Recovered/Resolved]
  - Pneumonia [Unknown]
  - Central venous catheterisation [Unknown]
  - Hepatitis B [Unknown]
  - Pancytopenia [Unknown]
  - Hypophagia [Unknown]
  - Headache [Unknown]
  - HIV infection [Unknown]
  - Abdominal pain [Unknown]
  - Hypovolaemia [Unknown]
  - Tooth extraction [Unknown]
  - Chronic myeloid leukaemia recurrent [Unknown]
  - Febrile neutropenia [Unknown]
  - Pain [Unknown]
  - Influenza [Unknown]
  - Drug abuse [Unknown]
  - Transaminases increased [Unknown]
  - Pain in extremity [Unknown]
  - Hypertension [Unknown]
  - Klebsiella bacteraemia [Unknown]
  - Intervertebral disc protrusion [Unknown]
  - Major depression [Unknown]
  - Memory impairment [Unknown]
  - Urinary tract infection [Unknown]
  - Diarrhoea [Unknown]
  - Allogenic bone marrow transplantation therapy [Unknown]
  - Central venous catheter removal [Unknown]
  - Electrocardiogram QT prolonged [Unknown]
  - Neutropenic colitis [Unknown]
  - Renal disorder [Unknown]
  - Multiple drug therapy [Unknown]

NARRATIVE: CASE EVENT DATE: 20160229
